FAERS Safety Report 23994141 (Version 1)
Quarter: 2024Q2

REPORT INFORMATION
  Report Type: Spontaneous
  Country: US (occurrence: None)
  Receive Date: 20240618
  Receipt Date: 20240618
  Transmission Date: 20240715
  Serious: Yes (Other)
  Sender: FDA-Public Use
  Company Number: None

PATIENT
  Age: 30 Year
  Sex: Female
  Weight: 83.25 kg

DRUGS (5)
  1. DROPERIDOL [Suspect]
     Active Substance: DROPERIDOL
     Indication: Migraine
     Dates: start: 20240616, end: 20240616
  2. DROPERIDOL [Suspect]
     Active Substance: DROPERIDOL
     Indication: Nausea
  3. CYMBALTA [Concomitant]
     Active Substance: DULOXETINE HYDROCHLORIDE
  4. AMLODIPINE [Concomitant]
     Active Substance: AMLODIPINE BESYLATE
  5. CORLANOR [Concomitant]
     Active Substance: IVABRADINE HYDROCHLORIDE

REACTIONS (4)
  - Feeling hot [None]
  - Agitation [None]
  - Aggression [None]
  - Dyskinesia [None]

NARRATIVE: CASE EVENT DATE: 20240616
